FAERS Safety Report 6781588-2 (Version None)
Quarter: 2010Q2

REPORT INFORMATION
  Report Type: 
  Country: None (occurrence: None)
  Receive Date: 20100617
  Receipt Date: 20100617
  Transmission Date: 20101027
  Serious: Yes (Other)
  Sender: FDA-Public Use
  Company Number: None

PATIENT
  Age: 41 Year
  Sex: Female
  Weight: 96.6162 kg

DRUGS (1)
  1. NUBAIN [Suspect]
     Indication: PAIN
     Dosage: 10 MG + 10 MG ONCE IM + IV
     Route: 030
     Dates: start: 20100408

REACTIONS (2)
  - COMMUNICATION DISORDER [None]
  - DIZZINESS [None]
